FAERS Safety Report 19319333 (Version 1)
Quarter: 2021Q2

REPORT INFORMATION
  Report Type: Spontaneous
  Country: US (occurrence: US)
  Receive Date: 20210528
  Receipt Date: 20210528
  Transmission Date: 20210717
  Serious: No
  Sender: FDA-Public Use
  Company Number: None

PATIENT
  Age: 30 Year
  Sex: Female
  Weight: 63.9 kg

DRUGS (17)
  1. SUMATRIPTAN. [Concomitant]
     Active Substance: SUMATRIPTAN
  2. ALOE VERA [Concomitant]
     Active Substance: ALOE VERA LEAF
  3. AZO URINARY INCONTINENCE PILL [Concomitant]
  4. AMOXICILLIN. [Suspect]
     Active Substance: AMOXICILLIN
     Indication: BETA HAEMOLYTIC STREPTOCOCCAL INFECTION
     Dosage: ?          QUANTITY:30 CAPSULE(S);?
     Route: 048
     Dates: start: 20210524, end: 20210527
  5. AMOXICILLIN. [Suspect]
     Active Substance: AMOXICILLIN
     Indication: STREPTOCOCCUS TEST POSITIVE
     Dosage: ?          QUANTITY:30 CAPSULE(S);?
     Route: 048
     Dates: start: 20210524, end: 20210527
  6. VIIBRYD [Concomitant]
     Active Substance: VILAZODONE HYDROCHLORIDE
  7. VITAMIN B COMPLEX [Concomitant]
     Active Substance: CYANOCOBALAMIN\DEXPANTHENOL\NIACINAMIDE\PYRIDOXINE HYDROCHLORIDE\RIBOFLAVIN 5^-PHOSPHATE SODIUM\THIAMINE HYDROCHLORIDE\VITAMIN B COMPLEX
  8. CLARITIN [Concomitant]
     Active Substance: LORATADINE
  9. AMZEEQ FOAM [Concomitant]
  10. ALPHA LIPOIC ACID [Concomitant]
     Active Substance: .ALPHA.-LIPOIC ACID
  11. NORETHINDRONE 0.35MG GENERIC + NORA?BE [Concomitant]
     Active Substance: NORETHINDRONE
  12. AKLIEF [Concomitant]
     Active Substance: TRIFAROTENE
  13. NIACINAMIDE [Concomitant]
     Active Substance: NIACINAMIDE
  14. ZINC. [Concomitant]
     Active Substance: ZINC
  15. VYVANSE [Concomitant]
     Active Substance: LISDEXAMFETAMINE DIMESYLATE
  16. METOPROLOL 25MG [Concomitant]
     Active Substance: METOPROLOL
  17. ABILIFY [Concomitant]
     Active Substance: ARIPIPRAZOLE

REACTIONS (5)
  - Anxiety [None]
  - Irritability [None]
  - Head discomfort [None]
  - Discomfort [None]
  - Crying [None]

NARRATIVE: CASE EVENT DATE: 20210527
